FAERS Safety Report 5705098-6 (Version None)
Quarter: 2008Q2

REPORT INFORMATION
  Report Type: 
  Country: None (occurrence: None)
  Receive Date: 20080410
  Receipt Date: 20080326
  Transmission Date: 20081010
  Serious: Yes (Hospitalization)
  Sender: FDA-Public Use
  Company Number: 025484

PATIENT
  Sex: Female

DRUGS (3)
  1. CLARAVIS [Suspect]
     Indication: ACNE CYSTIC
     Dosage: 30 MG, BID; ORAL
     Route: 048
     Dates: start: 20071221, end: 20080325
  2. AZATHIOPRINE [Concomitant]
  3. LEXAPRO [Concomitant]

REACTIONS (2)
  - UTERINE LEIOMYOMA [None]
  - UTERINE PAIN [None]
